FAERS Safety Report 7792849-2 (Version None)
Quarter: 2011Q4

REPORT INFORMATION
  Report Type: 
  Country: None (occurrence: None)
  Receive Date: 20111003
  Receipt Date: 20110912
  Transmission Date: 20120403
  Serious: Yes (Other)
  Sender: FDA-Public Use
  Company Number: AU-GLAXOSMITHKLINE-B0747467A

PATIENT
  Sex: Female

DRUGS (3)
  1. AUGMENTIN '125' [Concomitant]
  2. AVAMYS [Suspect]
     Indication: CHRONIC SINUSITIS
     Route: 045
  3. RULIDE [Concomitant]

REACTIONS (3)
  - SINUSITIS [None]
  - PRODUCT QUALITY ISSUE [None]
  - MALAISE [None]
